FAERS Safety Report 26041349 (Version 1)
Quarter: 2025Q4

REPORT INFORMATION
  Report Type: Spontaneous
  Country: US (occurrence: US)
  Receive Date: 20251113
  Receipt Date: 20251113
  Transmission Date: 20260118
  Serious: Yes (Disabling)
  Sender: MYLAN
  Company Number: US-MYLANLABS-2025M1092437

PATIENT
  Age: 63 Year
  Sex: Female
  Weight: 63.05 kg

DRUGS (4)
  1. ZOLEDRONIC ACID [Suspect]
     Active Substance: ZOLEDRONIC ACID
     Indication: Osteoporosis
     Dosage: 0.05 MILLIGRAM PER MILLILITRE, QY  (ONCE A YEAR)
     Dates: start: 20251017
  2. ZOLEDRONIC ACID [Suspect]
     Active Substance: ZOLEDRONIC ACID
     Dosage: 0.05 MILLIGRAM PER MILLILITRE, QY  (ONCE A YEAR)
     Route: 065
     Dates: start: 20251017
  3. ZOLEDRONIC ACID [Suspect]
     Active Substance: ZOLEDRONIC ACID
     Dosage: 0.05 MILLIGRAM PER MILLILITRE, QY  (ONCE A YEAR)
     Route: 065
     Dates: start: 20251017
  4. ZOLEDRONIC ACID [Suspect]
     Active Substance: ZOLEDRONIC ACID
     Dosage: 0.05 MILLIGRAM PER MILLILITRE, QY  (ONCE A YEAR)
     Dates: start: 20251017

REACTIONS (2)
  - Arthralgia [Not Recovered/Not Resolved]
  - Product prescribing issue [Unknown]

NARRATIVE: CASE EVENT DATE: 20251017
